FAERS Safety Report 6859911-X (Version None)
Quarter: 2010Q3

REPORT INFORMATION
  Report Type: 
  Country: None (occurrence: None)
  Receive Date: 20100720
  Receipt Date: 20100708
  Transmission Date: 20110219
  Serious: Yes (Death, Hospitalization)
  Sender: FDA-Public Use
  Company Number: ES-WYE-H16082410

PATIENT
  Age: 56 Year
  Sex: Female

DRUGS (4)
  1. TYGACIL [Suspect]
     Indication: ACINETOBACTER INFECTION
     Dosage: 100 MG LOADING DOSE, THEN 50 MG Q12H
     Route: 042
  2. TYGACIL [Suspect]
     Indication: ABDOMINAL ABSCESS
  3. RIFAMPICIN [Concomitant]
     Indication: ACINETOBACTER INFECTION
     Dosage: UNKNOWN
     Route: 042
  4. RIFAMPICIN [Concomitant]
     Indication: ABDOMINAL ABSCESS

REACTIONS (3)
  - ABDOMINAL ABSCESS [None]
  - PSEUDOMONAS INFECTION [None]
  - SUPERINFECTION [None]
